FAERS Safety Report 25268274 (Version 1)
Quarter: 2025Q2

REPORT INFORMATION
  Report Type: Spontaneous
  Country: DE (occurrence: DE)
  Receive Date: 20250505
  Receipt Date: 20250505
  Transmission Date: 20250717
  Serious: Yes (Other)
  Sender: TEVA
  Company Number: None

PATIENT
  Sex: Male

DRUGS (4)
  1. MIRTAZAPINE [Interacting]
     Active Substance: MIRTAZAPINE
     Indication: Product used for unknown indication
     Route: 065
     Dates: start: 20250409
  2. BISOPROLOL FUMARATE [Concomitant]
     Active Substance: BISOPROLOL FUMARATE
     Indication: Product used for unknown indication
     Dosage: 2.5 MG IN THE MORNING
     Route: 065
  3. KEYTRUDA [Concomitant]
     Active Substance: PEMBROLIZUMAB
     Indication: Immune enhancement therapy
     Route: 065
  4. LEVETIRACETAM [Concomitant]
     Active Substance: LEVETIRACETAM
     Indication: Epilepsy
     Route: 065

REACTIONS (9)
  - Alcoholism [Recovered/Resolved]
  - Somnolence [Recovered/Resolved]
  - Drug dependence [Recovered/Resolved]
  - Speech disorder [Recovered/Resolved]
  - Product substitution issue [Unknown]
  - Feeling drunk [Recovered/Resolved]
  - Sleep disorder [Recovered/Resolved]
  - Labelled drug-disease interaction issue [Recovered/Resolved]
  - Speech disorder [Recovered/Resolved]

NARRATIVE: CASE EVENT DATE: 20250401
